FAERS Safety Report 6327472-X (Version None)
Quarter: 2009Q3

REPORT INFORMATION
  Report Type: 
  Country: None (occurrence: None)
  Receive Date: 20090825
  Receipt Date: 20090817
  Transmission Date: 20100115
  Serious: Yes (Death, Life-Threatening)
  Sender: FDA-Public Use
  Company Number: GB-JNJFOC-20040701159

PATIENT
  Sex: Female

DRUGS (8)
  1. REMICADE [Suspect]
     Indication: RHEUMATOID ARTHRITIS
     Route: 042
  2. METHOTREXATE [Concomitant]
     Route: 065
  3. FOLIC ACID [Concomitant]
     Route: 065
  4. CALCICHEW [Concomitant]
     Route: 065
  5. LOSARTAN [Concomitant]
     Route: 065
  6. CARBIMAZOLE [Concomitant]
     Route: 065
  7. ESTRADERM [Concomitant]
     Route: 065
  8. PREDNISOLONE [Concomitant]
     Route: 065

REACTIONS (2)
  - CARDIAC FAILURE [None]
  - RHEUMATOID ARTHRITIS [None]
